FAERS Safety Report 11661632 (Version 1)
Quarter: 2015Q4

REPORT INFORMATION
  Report Type: Spontaneous
  Country: US (occurrence: US)
  Receive Date: 20151026
  Receipt Date: 20151026
  Transmission Date: 20160304
  Serious: No
  Sender: FDA-Public Use
  Company Number: US-PFIZER INC-2015347793

PATIENT
  Age: 34 Year
  Sex: Male

DRUGS (1)
  1. DILANTIN [Suspect]
     Active Substance: PHENYTOIN
     Indication: SEIZURE
     Dosage: 100 MG CAPSULE, 3 CAPSULES,1 CAPSULE OF 30MG, TOTAL 330MG
     Dates: start: 200005

REACTIONS (2)
  - Depressed mood [Unknown]
  - Depression [Not Recovered/Not Resolved]
